FAERS Safety Report 13831979 (Version 1)
Quarter: 2017Q3

REPORT INFORMATION
  Report Type: Spontaneous
  Country: US (occurrence: US)
  Receive Date: 20170803
  Receipt Date: 20170803
  Transmission Date: 20171127
  Serious: No
  Sender: FDA-Public Use
  Company Number: None

PATIENT
  Age: 66 Year
  Sex: Female

DRUGS (1)
  1. CAPECITABINE TAB 500MG [Suspect]
     Active Substance: CAPECITABINE
     Dosage: 1500 MG BID QD X 13 DAYS, PO
     Route: 048

REACTIONS (2)
  - Hypoaesthesia [None]
  - Grip strength decreased [None]

NARRATIVE: CASE EVENT DATE: 20170803
